FAERS Safety Report 11246392 (Version 1)
Quarter: 2015Q3

REPORT INFORMATION
  Report Type: Spontaneous
  Country: US (occurrence: None)
  Receive Date: 20150706
  Receipt Date: 20150706
  Transmission Date: 20151125
  Serious: Yes (Other)
  Sender: FDA-Public Use
  Company Number: None

PATIENT
  Age: 45 Year
  Sex: Male
  Weight: 104.33 kg

DRUGS (1)
  1. LAMOTRIGINE 200 MG GSK [Suspect]
     Active Substance: LAMOTRIGINE
     Dosage: TAKEN BY MOUTH

REACTIONS (3)
  - Drug interaction [None]
  - Pleurisy [None]
  - Vitamin D decreased [None]

NARRATIVE: CASE EVENT DATE: 20100502
